FAERS Safety Report 24027061 (Version 1)
Quarter: 2024Q2

REPORT INFORMATION
  Report Type: Report from Study
  Country: TR (occurrence: TR)
  Receive Date: 20240628
  Receipt Date: 20240628
  Transmission Date: 20240716
  Serious: No
  Sender: FDA-Public Use
  Company Number: TR-ROCHE-3577525

PATIENT
  Age: 37 Year
  Sex: Male
  Weight: 69.0 kg

DRUGS (15)
  1. ALECTINIB [Suspect]
     Active Substance: ALECTINIB
     Indication: Lung cancer metastatic
     Dosage: ON 24/MAR/2021, FIRST DOSE WAS ADMINISTERED.
     Route: 048
     Dates: start: 20210611
  2. GERALGINE-K [Concomitant]
     Indication: Bone pain
  3. DEXAMETHASONE [Concomitant]
     Active Substance: DEXAMETHASONE
     Indication: Oedema
  4. DELTACORTRIL [Concomitant]
     Active Substance: PREDNISOLONE
  5. SULFASALAZINE [Concomitant]
     Active Substance: SULFASALAZINE
  6. D-COLEFOR [Concomitant]
     Indication: Vitamin D deficiency
  7. NUTRIVIGOR [Concomitant]
  8. KEPPRA [Concomitant]
     Active Substance: LEVETIRACETAM
  9. LANSOPRAZOLE [Concomitant]
     Active Substance: LANSOPRAZOLE
  10. BEVACIZUMAB [Concomitant]
     Active Substance: BEVACIZUMAB
  11. CIPRALEX [Concomitant]
     Active Substance: ESCITALOPRAM OXALATE
     Indication: Depression
  12. BACTROBAN [Concomitant]
     Active Substance: MUPIROCIN CALCIUM
  13. TANFLEX [Concomitant]
  14. EPINEPHRINE\LIDOCAINE HYDROCHLORIDE [Concomitant]
     Active Substance: EPINEPHRINE\LIDOCAINE HYDROCHLORIDE
  15. LORLATINIB [Concomitant]
     Active Substance: LORLATINIB

REACTIONS (1)
  - Depression [Not Recovered/Not Resolved]

NARRATIVE: CASE EVENT DATE: 20221003
